FAERS Safety Report 24843069 (Version 1)
Quarter: 2025Q1

REPORT INFORMATION
  Report Type: Report from Study
  Country: US (occurrence: US)
  Receive Date: 20250115
  Receipt Date: 20250115
  Transmission Date: 20250409
  Serious: No
  Sender: HRA PHARMA
  Company Number: US-ORG100014127-2024000157

PATIENT
  Age: 59 Year
  Sex: Female

DRUGS (10)
  1. LYSODREN [Suspect]
     Active Substance: MITOTANE
     Indication: Product used for unknown indication
     Dosage: 1 TABLETS (1000 MG) BY MOUTH TWICE DAILY FOR 7 DAYS
     Route: 048
     Dates: start: 20231204
  2. LYSODREN [Suspect]
     Active Substance: MITOTANE
     Indication: Product used for unknown indication
     Dosage: 2 TABLETS (1000 MG) TWICE DAILY FOR 7 DAYS
     Route: 048
  3. LYSODREN [Suspect]
     Active Substance: MITOTANE
     Indication: Product used for unknown indication
     Dosage: 3 TABLETS (1500 MG) TWICE DAILY FOR 7 DAYS
     Route: 048
  4. LYSODREN [Suspect]
     Active Substance: MITOTANE
     Indication: Product used for unknown indication
     Dosage: 4 TABLETS (2000 MG) BY MOUTH TWICE DAILY
     Route: 048
  5. LYSODREN [Suspect]
     Active Substance: MITOTANE
     Indication: Product used for unknown indication
     Dosage: 5 TABLETS (2500 MG) BY MOUTH TWICE DAILY
     Route: 048
  6. LYSODREN [Suspect]
     Active Substance: MITOTANE
     Indication: Product used for unknown indication
     Dosage: 4 TABLETS (2000 MG) BY MOUTH TWICE DAILY
     Route: 048
     Dates: start: 2024
  7. ACETAMINOPHN TAB 325MG [Concomitant]
     Indication: Product used for unknown indication
  8. GABAPENTIN [Concomitant]
     Active Substance: GABAPENTIN
     Indication: Product used for unknown indication
  9. ONDANSETRON [Concomitant]
     Active Substance: ONDANSETRON
     Indication: Product used for unknown indication
  10. VITAMIN D3 TAB 5000UNIT [Concomitant]
     Indication: Product used for unknown indication

REACTIONS (3)
  - Weight decreased [Recovering/Resolving]
  - Diarrhoea [Recovering/Resolving]
  - Decreased appetite [Recovering/Resolving]

NARRATIVE: CASE EVENT DATE: 20240101
